FAERS Safety Report 11635494 (Version 9)
Quarter: 2021Q3

REPORT INFORMATION
  Report Type: Report from Study
  Country: CN (occurrence: CN)
  Receive Date: 20151016
  Receipt Date: 20210812
  Transmission Date: 20211014
  Serious: Yes (Death)
  Sender: FDA-Public Use
  Company Number: CN-ROCHE-1646095

PATIENT
  Age: 69 Year
  Sex: Male
  Weight: 67 kg

DRUGS (35)
  1. DIPHENHYDRAMINE HYDROCHLORIDE. [Concomitant]
     Active Substance: DIPHENHYDRAMINE HYDROCHLORIDE
     Indication: PREMEDICATION
     Dates: start: 20140506, end: 20150921
  2. MORPHINE HYDROCHLORIDE [Concomitant]
     Active Substance: MORPHINE HYDROCHLORIDE
     Dates: start: 20151019, end: 20151019
  3. LIDOCAINE HYDROCHLORIDE. [Concomitant]
     Active Substance: LIDOCAINE HYDROCHLORIDE
     Indication: LOCAL ANAESTHESIA
     Dates: start: 20151008, end: 20151008
  4. POTASSIUM PERMANGANATE [Concomitant]
     Active Substance: POTASSIUM PERMANGANATE
     Dates: start: 20130918
  5. BERBAMINE HYDROCHLORIDE [Concomitant]
     Dates: start: 20130918
  6. POTASSIUM PERMANGANATE [Concomitant]
     Active Substance: POTASSIUM PERMANGANATE
     Dates: start: 20131120
  7. CYCLOPHOSPHAMIDE. [Suspect]
     Active Substance: CYCLOPHOSPHAMIDE
     Indication: NON-HODGKIN^S LYMPHOMA UNSPECIFIED HISTOLOGY INDOLENT
     Dosage: DOSE OF LAST CYCLOPHOSPHAMIDE TAKEN: 1335 MG.?DATE OF MOST RECENT DOSE PRIOR TO SAE: 10/OCT/2013
     Route: 042
     Dates: start: 20130626
  8. MORPHINE HYDROCHLORIDE [Concomitant]
     Active Substance: MORPHINE HYDROCHLORIDE
     Dates: start: 20151026, end: 20151026
  9. BERBAMINE HYDROCHLORIDE [Concomitant]
     Dates: start: 20131030
  10. POTASSIUM PERMANGANATE [Concomitant]
     Active Substance: POTASSIUM PERMANGANATE
     Dates: start: 20131009
  11. DOXORUBICIN [Suspect]
     Active Substance: DOXORUBICIN
     Indication: NON-HODGKIN^S LYMPHOMA UNSPECIFIED HISTOLOGY INDOLENT
     Dosage: DOSE OF LAST DOXORUBICIN TAKEN: 89 MG.?DATE OF MOST RECENT DOSE PRIOR TO SAE: 10/OCT/2013.
     Route: 042
     Dates: start: 20130626
  12. OXYCODONE HYDROCHLORIDE. [Concomitant]
     Active Substance: OXYCODONE HYDROCHLORIDE
     Indication: ANALGESIC THERAPY
     Dates: start: 20151020, end: 20151020
  13. BERBAMINE HYDROCHLORIDE [Concomitant]
     Indication: PROPHYLAXIS
     Dates: start: 20130619
  14. POTASSIUM PERMANGANATE [Concomitant]
     Active Substance: POTASSIUM PERMANGANATE
     Dates: start: 20130807
  15. ROXITHROMYCIN [Concomitant]
     Active Substance: ROXITHROMYCIN
     Dosage: RELIEVING COUGH AND REDUCING SPUTUM
     Dates: start: 20150820, end: 20150914
  16. CEFOTIAM HYDROCHLORIDE [Concomitant]
     Active Substance: CEFOTIAM HYDROCHLORIDE
     Dates: start: 20151019, end: 20151022
  17. MORPHINE HYDROCHLORIDE [Concomitant]
     Active Substance: MORPHINE HYDROCHLORIDE
     Indication: ANALGESIC THERAPY
     Dosage: ALLEVIATING PAIN
     Dates: start: 20151016, end: 20151016
  18. PREDNISONE. [Concomitant]
     Active Substance: PREDNISONE
     Indication: PREMEDICATION
     Route: 065
     Dates: start: 20140314, end: 20150921
  19. CEFOTIAM HYDROCHLORIDE [Concomitant]
     Active Substance: CEFOTIAM HYDROCHLORIDE
     Dates: start: 20151019, end: 20151019
  20. BUCINNAZINE [Concomitant]
     Active Substance: BUCINNAZINE
     Indication: ANALGESIC THERAPY
     Dates: start: 20151016, end: 20151016
  21. DEXAMETHASONE SODIUM PHOSPHATE. [Concomitant]
     Active Substance: DEXAMETHASONE SODIUM PHOSPHATE
     Dates: start: 20151016, end: 20151016
  22. MORPHINE HYDROCHLORIDE [Concomitant]
     Active Substance: MORPHINE HYDROCHLORIDE
     Dates: start: 20151026, end: 20151026
  23. POTASSIUM PERMANGANATE [Concomitant]
     Active Substance: POTASSIUM PERMANGANATE
     Dates: start: 20131030
  24. BIFID TRIPLE VIABLE [Concomitant]
     Indication: DIARRHOEA
     Dates: start: 20151027, end: 20151027
  25. MONTMORILLONITE [Concomitant]
     Active Substance: MONTMORILLONITE
     Indication: DIARRHOEA
     Dates: start: 20151027, end: 20151027
  26. RITUXIMAB. [Suspect]
     Active Substance: RITUXIMAB
     Indication: NON-HODGKIN^S LYMPHOMA UNSPECIFIED HISTOLOGY INDOLENT
     Dosage: VOLUME OF LAST RITUXIMAB TAKEN: 334 ML.?DOSE CONCENTRATION OF LAST RITUXIMAB TAKEN: 2 MG/ML?DATE OF
     Route: 041
     Dates: start: 20130625
  27. PREDNISONE. [Suspect]
     Active Substance: PREDNISONE
     Indication: NON-HODGKIN^S LYMPHOMA UNSPECIFIED HISTOLOGY INDOLENT
     Dosage: DOSE OF LAST PREDNISONE TAKEN: 100 MG.?DATE OF MOST RECENT DOSE PRIOR TO SAE: 08/OCT/2013
     Route: 048
     Dates: start: 20130626
  28. DEXAMETHASONE SODIUM PHOSPHATE. [Concomitant]
     Active Substance: DEXAMETHASONE SODIUM PHOSPHATE
     Dates: start: 20151018, end: 20151019
  29. DOMPERIDONE [Concomitant]
     Active Substance: DOMPERIDONE
     Indication: PROPHYLAXIS OF NAUSEA AND VOMITING
     Dates: start: 20151020, end: 20151020
  30. BERBAMINE HYDROCHLORIDE [Concomitant]
     Dates: start: 20130829
  31. POTASSIUM PERMANGANATE [Concomitant]
     Active Substance: POTASSIUM PERMANGANATE
     Dates: start: 20130829
  32. ERYTHROPOIETIN [Concomitant]
     Active Substance: ERYTHROPOIETIN
     Indication: ANAEMIA
     Dates: start: 20131010
  33. MORPHINE HYDROCHLORIDE [Concomitant]
     Active Substance: MORPHINE HYDROCHLORIDE
     Dates: start: 20151029, end: 20151029
  34. LIDOCAINE HYDROCHLORIDE. [Concomitant]
     Active Substance: LIDOCAINE HYDROCHLORIDE
     Dates: start: 20151026, end: 20151026
  35. VINCRISTINE [Suspect]
     Active Substance: VINCRISTINE
     Indication: NON-HODGKIN^S LYMPHOMA UNSPECIFIED HISTOLOGY INDOLENT
     Dosage: DOSE OF LAST VINCRISTINE TAKEN: 2 MG.?DATE OF MOST RECENT DOSE PRIOR TO SAE: 10/OCT/2013.
     Route: 042
     Dates: start: 20130626

REACTIONS (1)
  - Lung adenocarcinoma [Fatal]

NARRATIVE: CASE EVENT DATE: 20151010
